FAERS Safety Report 4896729-1 (Version None)
Quarter: 2006Q1

REPORT INFORMATION
  Report Type: 
  Country: None (occurrence: None)
  Receive Date: 20060131
  Receipt Date: 20060125
  Transmission Date: 20060701
  Serious: Yes (Other)
  Sender: FDA-Public Use
  Company Number: US-JNJFOC-20060105327

PATIENT
  Sex: Female

DRUGS (1)
  1. ORTHO EVRA [Suspect]
     Indication: DRUG USE FOR UNKNOWN INDICATION
     Route: 062
     Dates: start: 20021201, end: 20030301

REACTIONS (5)
  - ABORTION SPONTANEOUS [None]
  - PREGNANCY [None]
  - PREMATURE LABOUR [None]
  - THROMBOSIS [None]
  - VAGINAL HAEMORRHAGE [None]
